FAERS Safety Report 14553135 (Version 1)
Quarter: 2018Q1

REPORT INFORMATION
  Report Type: Report from Study
  Country: ES (occurrence: ES)
  Receive Date: 20180220
  Receipt Date: 20180220
  Transmission Date: 20180509
  Serious: Yes (Life-Threatening, Hospitalization)
  Sender: FDA-Public Use
  Company Number: PHHY2018ES028252

PATIENT
  Age: 38 Year
  Sex: Male
  Weight: 98 kg

DRUGS (5)
  1. PKC412 [Suspect]
     Active Substance: MIDOSTAURIN
     Indication: ACUTE MYELOID LEUKAEMIA
     Dosage: 50 MG/12L, QD
     Route: 048
     Dates: start: 20171102, end: 20171114
  2. IDARUBICIN [Concomitant]
     Active Substance: IDARUBICIN
     Dosage: 12 MG/M2, UNK
     Route: 065
     Dates: start: 20171127
  3. IDARUBICIN [Concomitant]
     Active Substance: IDARUBICIN
     Indication: ACUTE MYELOID LEUKAEMIA
     Dosage: 12 MG/M2, UNK
     Route: 065
     Dates: start: 20171126
  4. IDARUBICIN [Concomitant]
     Active Substance: IDARUBICIN
     Dosage: 12 MG/M2, UNK
     Route: 065
     Dates: start: 20171128
  5. CYTARABINE. [Concomitant]
     Active Substance: CYTARABINE
     Indication: ACUTE MYELOID LEUKAEMIA
     Dosage: 200 MG/M2, UNK
     Route: 065
     Dates: start: 20171126

REACTIONS (3)
  - Bronchopulmonary aspergillosis [Recovering/Resolving]
  - Aplasia [Recovering/Resolving]
  - Neutropenia [Recovering/Resolving]

NARRATIVE: CASE EVENT DATE: 20171126
